FAERS Safety Report 13399908 (Version 1)
Quarter: 2017Q2

REPORT INFORMATION
  Report Type: Report from Study
  Country: GB (occurrence: GB)
  Receive Date: 20170404
  Receipt Date: 20170404
  Transmission Date: 20170830
  Serious: Yes (Death, Other)
  Sender: FDA-Public Use
  Company Number: GB-ACCORD-049806

PATIENT

DRUGS (3)
  1. CYCLOPHOSPHAMIDE/CYCLOPHOSPHAMIDE MONOHYDRATE [Suspect]
     Active Substance: CYCLOPHOSPHAMIDE
     Indication: BREAST CANCER
     Dosage: ADJUVANT FEC 75 CHEMOTHERAPY,?EVERY THREE WEEKS FOR 5 CYCLES
     Route: 042
  2. FLUOROURACIL. [Suspect]
     Active Substance: FLUOROURACIL
     Indication: BREAST CANCER
     Dosage: ADJUVANT FEC 75 CHEMOTHERAPY,??EVERY THREE WEEKS FOR 5 CYCLES.
     Route: 042
  3. EPIRUBICIN [Suspect]
     Active Substance: EPIRUBICIN
     Indication: BREAST CANCER
     Dosage: ADJUVANT FEC 75 CHEMOTHERAPY,??EVERY THREE WEEKS FOR 5 CYCLES
     Route: 042

REACTIONS (3)
  - Pulmonary embolism [Fatal]
  - White blood cell count decreased [Unknown]
  - Lower respiratory tract infection [Fatal]
